FAERS Safety Report 10207302 (Version 1)
Quarter: 2014Q2

REPORT INFORMATION
  Report Type: Spontaneous
  Country: US (occurrence: None)
  Receive Date: 20140528
  Receipt Date: 20140528
  Transmission Date: 20141212
  Serious: Yes (Disabling)
  Sender: FDA-Public Use
  Company Number: None

PATIENT
  Age: 40 Year
  Sex: Male
  Weight: 113.4 kg

DRUGS (6)
  1. PAXIL [Suspect]
     Indication: ANXIETY
     Route: 048
     Dates: start: 2000, end: 2001
  2. ABILIFY [Concomitant]
  3. PROZAC [Concomitant]
  4. KLONOPIN [Concomitant]
  5. ATORVASTATIN [Concomitant]
  6. LISINOPRIL [Concomitant]

REACTIONS (2)
  - Penile size reduced [None]
  - Hypersexuality [None]
